FAERS Safety Report 24231285 (Version 3)
Quarter: 2024Q3

REPORT INFORMATION
  Report Type: Spontaneous
  Country: CA (occurrence: CA)
  Receive Date: 20240821
  Receipt Date: 20240912
  Transmission Date: 20241016
  Serious: Yes (Other)
  Sender: CELLTRION
  Company Number: CA-PFIZER INC-202400235729

PATIENT

DRUGS (2)
  1. INFLECTRA [Suspect]
     Active Substance: INFLIXIMAB-DYYB
     Indication: Colitis ulcerative
     Dosage: 10 MG/KG (INDUCTION WEEK 2, 6 THEN MAINTENANCE EVERY 8 WEEK. WEEK 0 DOSE IN HOSPIT 07AUG2024)
     Route: 042
     Dates: start: 20240807
  2. CORTISONE [Concomitant]
     Active Substance: CORTISONE
     Dosage: 40 MG, DAILY

REACTIONS (7)
  - Condition aggravated [Unknown]
  - Intestinal resection [Unknown]
  - Heart rate increased [Unknown]
  - Hyperhidrosis [Unknown]
  - Chills [Unknown]
  - Feeling of body temperature change [Unknown]
  - Hot flush [Unknown]

NARRATIVE: CASE EVENT DATE: 20240101
